FAERS Safety Report 8986802 (Version 1)
Quarter: 2012Q4

REPORT INFORMATION
  Report Type: 
  Country: FR (occurrence: FR)
  Receive Date: 20121226
  Receipt Date: 20121226
  Transmission Date: 20130627
  Serious: Yes (Hospitalization)
  Sender: FDA-Public Use
  Company Number: FR-ROCHE-1173344

PATIENT
  Age: 58 Year
  Sex: Female

DRUGS (7)
  1. AVASTIN [Suspect]
     Indication: BREAST CANCER METASTATIC
     Dosage: 25 mg/mL
     Route: 042
     Dates: start: 20121002, end: 20121002
  2. PACLITAXEL [Suspect]
     Indication: BREAST CANCER METASTATIC
     Dosage: 6 mg/mL
     Route: 042
     Dates: start: 20121002, end: 20121002
  3. ACUPAN [Concomitant]
     Route: 065
     Dates: start: 20120924, end: 20121011
  4. LASILIX [Concomitant]
     Route: 065
     Dates: start: 20120927, end: 20121005
  5. SOLU-MEDROL [Concomitant]
     Route: 065
     Dates: start: 20120925
  6. FUROSEMIDE [Concomitant]
  7. CIFLOX (FRANCE) [Concomitant]
     Indication: PNEUMONIA KLEBSIELLA
     Route: 065
     Dates: start: 20121004, end: 20121010

REACTIONS (2)
  - Pancytopenia [Recovered/Resolved]
  - Condition aggravated [Recovered/Resolved]
